FAERS Safety Report 9208291 (Version 1)
Quarter: 2013Q2

REPORT INFORMATION
  Report Type: Spontaneous
  Country: GB (occurrence: GB)
  Receive Date: 20130403
  Receipt Date: 20130403
  Transmission Date: 20140414
  Serious: Yes (Disabling, Other)
  Sender: FDA-Public Use
  Company Number: GB-B.I. PHARMACEUTICALS,INC./RIDGEFIELD-2013-UK-00828UK

PATIENT
  Age: 65 Year
  Sex: Female
  Weight: 80 kg

DRUGS (27)
  1. TRAJENTA [Suspect]
     Dates: start: 20130204
  2. ACIDEX [Concomitant]
     Dates: start: 20130111, end: 20130123
  3. ACIDEX [Concomitant]
     Dates: start: 20130203, end: 20130225
  4. ACIDEX [Concomitant]
     Dates: start: 20121217, end: 20121229
  5. CALCICHEW D3 [Concomitant]
     Dates: start: 20121217
  6. CETIRIZINE [Concomitant]
     Dates: start: 20121217
  7. CETOMACROGOL [Concomitant]
     Dates: start: 20130122, end: 20130123
  8. CETOMACROGOL [Concomitant]
     Dates: start: 20130312
  9. CLARITHROMYCIN [Concomitant]
     Dates: start: 20121231, end: 20130107
  10. CLARITHROMYCIN [Concomitant]
     Dates: start: 20121217, end: 20121224
  11. CLARITHROMYCIN [Concomitant]
     Dates: start: 20130213
  12. CLOTRIMAZOLE [Concomitant]
     Dates: start: 20121218, end: 20130115
  13. COCONUT OIL [Concomitant]
     Dates: start: 20130213, end: 20130214
  14. DULOXETINE [Concomitant]
     Dates: start: 20121218, end: 20130117
  15. EPIPEN [Concomitant]
     Dates: start: 20121218, end: 20121219
  16. FLUCONAZOLE [Concomitant]
     Dates: start: 20130204, end: 20130211
  17. FLUTICASONE [Concomitant]
     Dates: start: 20121217
  18. GLICLAZIDE [Concomitant]
     Dates: start: 20121217
  19. LEVOTHYROXINE [Concomitant]
     Dates: start: 20121217
  20. METOCLOPRAMIDE [Concomitant]
     Dates: start: 20130304
  21. OMEPRAZOLE [Concomitant]
     Dates: start: 20121217
  22. PARACETAMOL [Concomitant]
     Dates: start: 20130111, end: 20130121
  23. PARACETAMOL [Concomitant]
     Dates: start: 20130312
  24. PARACETAMOL [Concomitant]
     Dates: start: 20121217, end: 20121227
  25. ROSUVASTATIN [Concomitant]
     Dates: start: 20121217
  26. VALSARTAN [Concomitant]
     Dates: start: 20121217
  27. VENTOLIN [Concomitant]
     Dates: start: 20121217

REACTIONS (2)
  - Abdominal pain upper [Recovered/Resolved]
  - Gastritis [Unknown]
